FAERS Safety Report 21838619 (Version 6)
Quarter: 2024Q3

REPORT INFORMATION
  Report Type: Report from Study
  Country: US (occurrence: US)
  Receive Date: 20230109
  Receipt Date: 20240930
  Transmission Date: 20241016
  Serious: Yes (Hospitalization, Other)
  Sender: TAKEDA
  Company Number: US-TAKEDA-2022TUS059050

PATIENT
  Age: 75 Year
  Sex: Female

DRUGS (3)
  1. LANADELUMAB [Suspect]
     Active Substance: LANADELUMAB
     Indication: Hereditary angioedema
     Dosage: UNK UNK, 2/WEEK
     Route: 058
  2. LANADELUMAB [Suspect]
     Active Substance: LANADELUMAB
     Indication: Prophylaxis
     Dosage: 1 DOSAGE FORM, Q2WEEKS
     Route: 058
  3. LANADELUMAB [Suspect]
     Active Substance: LANADELUMAB
     Dosage: 300 MILLIGRAM, Q4WEEKS
     Route: 058

REACTIONS (12)
  - Pain [Recovering/Resolving]
  - Pancreatic failure [Recovering/Resolving]
  - Urinary tract infection [Recovering/Resolving]
  - Injection site urticaria [Not Recovered/Not Resolved]
  - Injection site pruritus [Not Recovered/Not Resolved]
  - Arthritis [Recovering/Resolving]
  - Neuralgia [Recovering/Resolving]
  - Abdominal pain [Not Recovered/Not Resolved]
  - Inappropriate schedule of product administration [Not Recovered/Not Resolved]
  - Abdominal pain lower [Not Recovered/Not Resolved]
  - Depression [Not Recovered/Not Resolved]
  - Injection site pain [Unknown]

NARRATIVE: CASE EVENT DATE: 20220829
